FAERS Safety Report 9619503 (Version 2)
Quarter: 2013Q4

REPORT INFORMATION
  Report Type: Spontaneous
  Country: US (occurrence: DE)
  Receive Date: 20131014
  Receipt Date: 20131106
  Transmission Date: 20140711
  Serious: Yes (Other)
  Sender: FDA-Public Use
  Company Number: DE-PFIZER INC-2013292312

PATIENT
  Age: 54 Year
  Sex: Female

DRUGS (3)
  1. PHENYTOIN [Suspect]
     Indication: STATUS EPILEPTICUS
     Dosage: 250 MG, UNK
     Route: 042
     Dates: start: 19680215, end: 196803
  2. PHENYTOIN [Suspect]
     Indication: GRAND MAL CONVULSION
  3. ZENTROPIL [Concomitant]
     Indication: CONVULSION
     Dosage: 1 DF, 3X/DAY
     Dates: start: 19680215

REACTIONS (6)
  - Attention deficit/hyperactivity disorder [Recovered/Resolved]
  - Toxicity to various agents [Recovered/Resolved]
  - Dystonia [Recovered/Resolved]
  - Athetosis [Recovered/Resolved]
  - Ballismus [Recovered/Resolved]
  - Drug ineffective [Unknown]
